FAERS Safety Report 17758901 (Version 2)
Quarter: 2020Q2

REPORT INFORMATION
  Report Type: Spontaneous
  Country: CH (occurrence: CH)
  Receive Date: 20200508
  Receipt Date: 20200603
  Transmission Date: 20200714
  Serious: Yes (Other)
  Sender: FDA-Public Use
  Company Number: CH-PFIZER INC-2020182222

PATIENT
  Age: 51 Year
  Sex: Male

DRUGS (31)
  1. IPRAMOL [Concomitant]
     Active Substance: ALBUTEROL SULFATE\IPRATROPIUM BROMIDE
     Dosage: UNK
     Dates: start: 20200405, end: 20200405
  2. ZITHROMAX [Suspect]
     Active Substance: AZITHROMYCIN DIHYDRATE
     Dosage: 500 MG, 1X/DAY
     Route: 048
     Dates: start: 20200405, end: 20200409
  3. POTASSIUM [Concomitant]
     Active Substance: POTASSIUM
     Dosage: UNK
     Dates: start: 20200410, end: 20200411
  4. BENERVA [Concomitant]
     Active Substance: THIAMINE HYDROCHLORIDE
     Dosage: UNK
     Dates: start: 20200411, end: 20200411
  5. CLEXANE [Suspect]
     Active Substance: ENOXAPARIN SODIUM
     Dosage: UNK
     Route: 058
     Dates: start: 20200413, end: 20200414
  6. CLEXANE [Suspect]
     Active Substance: ENOXAPARIN SODIUM
     Dosage: 40 MG, 2X/DAY
     Route: 058
     Dates: start: 20200414
  7. TEMESTA [LORAZEPAM] [Concomitant]
     Active Substance: LORAZEPAM
     Dosage: UNK
     Dates: start: 20200408, end: 20200408
  8. DORMICUM [MIDAZOLAM MALEATE] [Concomitant]
     Active Substance: MIDAZOLAM MALEATE
     Dosage: UNK
     Dates: start: 20200411
  9. HEPARIN [Concomitant]
     Active Substance: HEPARIN SODIUM
     Dosage: UNK
     Dates: start: 20200414
  10. RELISTOR [Concomitant]
     Active Substance: METHYLNALTREXONE BROMIDE
     Dosage: UNK
     Dates: start: 20200414
  11. NOVASOURCE GI CONTROL [Concomitant]
     Dosage: UNK
     Dates: start: 20200411
  12. MOVICOL [Concomitant]
     Active Substance: POLYETHYLENE GLYCOL 3350\POTASSIUM CHLORIDE\SODIUM BICARBONATE\SODIUM CHLORIDE
     Dosage: UNK (AS NECESSARY)
     Dates: start: 20200407, end: 20200412
  13. PIPERACILLIN/TAZOBACTAM [Suspect]
     Active Substance: PIPERACILLIN SODIUM\TAZOBACTAM SODIUM
     Dosage: 4.5 G, 3X/DAY
     Route: 041
     Dates: start: 20200409, end: 20200412
  14. KALETRA [Suspect]
     Active Substance: LOPINAVIR\RITONAVIR
     Dosage: 400 MG
     Route: 048
     Dates: start: 20200407, end: 20200410
  15. KALETRA [Suspect]
     Active Substance: LOPINAVIR\RITONAVIR
     Dosage: 400 MG, 2X/DAY
     Route: 048
     Dates: start: 20200405, end: 20200405
  16. ATRACURIUM [Concomitant]
     Active Substance: ATRACURIUM
     Dosage: UNK
     Dates: start: 20200411
  17. SOLU-MEDROL [Concomitant]
     Active Substance: METHYLPREDNISOLONE SODIUM SUCCINATE
     Dosage: UNK
     Dates: start: 20200414
  18. NOVORAPID [Concomitant]
     Active Substance: INSULIN ASPART
     Dosage: UNK
     Dates: start: 20200414
  19. TOBRAMYCIN. [Concomitant]
     Active Substance: TOBRAMYCIN
     Dosage: UNK
     Dates: start: 20200411
  20. AMPHOTERICIN B. [Concomitant]
     Active Substance: AMPHOTERICIN B
     Dosage: UNK
     Dates: start: 20200411
  21. TORASEMIDE [Concomitant]
     Active Substance: TORSEMIDE
     Dosage: UNK
     Dates: start: 20200410, end: 20200411
  22. PLAQUENIL [Suspect]
     Active Substance: HYDROXYCHLOROQUINE SULFATE
     Dosage: 800 MG, SINGLE
     Route: 048
     Dates: start: 20200404, end: 20200404
  23. CLEXANE [Suspect]
     Active Substance: ENOXAPARIN SODIUM
     Dosage: 40 MG, 1X/DAY
     Route: 058
     Dates: start: 20200405, end: 20200406
  24. PERFALGAN [Suspect]
     Active Substance: ACETAMINOPHEN
     Dosage: 1 MG (MAX 3XDAY; AS NECESSARY)
     Route: 042
     Dates: start: 20200405, end: 20200412
  25. FENTANYL. [Concomitant]
     Active Substance: FENTANYL
     Dosage: UNK
     Dates: start: 20200411
  26. COLISTIN [Concomitant]
     Active Substance: COLISTIN
     Dosage: UNK
     Dates: start: 20200411
  27. AUGMENTIN [Suspect]
     Active Substance: AMOXICILLIN\CLAVULANATE POTASSIUM
     Dosage: 1.2 G, 4X/DAY
     Route: 041
     Dates: start: 20200404, end: 20200409
  28. CLEXANE [Suspect]
     Active Substance: ENOXAPARIN SODIUM
     Dosage: 40 MG, 2X/DAY
     Route: 058
     Dates: start: 20200407, end: 20200412
  29. TAVANIC [Concomitant]
     Active Substance: LEVOFLOXACIN
     Dosage: UNK
     Dates: start: 20200412, end: 20200413
  30. PHOSPHATE [POTASSIUM BICARBONATE;SODIUM PHOSPHATE MONOBASIC] [Concomitant]
     Dosage: UNK
     Dates: start: 20200413
  31. VENTOLINE [SALBUTAMOL] [Concomitant]
     Active Substance: ALBUTEROL SULFATE
     Dosage: UNK (AS NECESSARY)
     Dates: start: 20200405, end: 20200412

REACTIONS (9)
  - Hepatocellular injury [Recovered/Resolved]
  - Hepatic infarction [Unknown]
  - Acute respiratory distress syndrome [Unknown]
  - Liver function test abnormal [Recovering/Resolving]
  - Product use issue [Unknown]
  - Hepatic artery occlusion [Unknown]
  - Hepatic perfusion disorder [Unknown]
  - Off label use [Unknown]
  - Hypoxia [Unknown]

NARRATIVE: CASE EVENT DATE: 20200405
